FAERS Safety Report 6500346-7 (Version None)
Quarter: 2009Q4

REPORT INFORMATION
  Report Type: 
  Country: None (occurrence: None)
  Receive Date: 20091216
  Receipt Date: 20091204
  Transmission Date: 20100525
  Serious: Yes (Life-Threatening, Hospitalization)
  Sender: FDA-Public Use
  Company Number: GB-ELI_LILLY_AND_COMPANY-GB200912001191

PATIENT
  Age: 39 Year
  Sex: Male

DRUGS (3)
  1. ZYPREXA [Suspect]
     Indication: SCHIZOPHRENIA
     Dosage: 15 MG, DAILY (1/D)
     Route: 048
  2. OMEPRAZOLE [Concomitant]
     Indication: GASTRITIS
     Dosage: 20 MG, DAILY (1/D)
     Route: 048
     Dates: start: 20090911, end: 20091124
  3. WARFARIN SODIUM [Concomitant]
     Indication: DEEP VEIN THROMBOSIS
     Dosage: 5 MG, DAILY (1/D)
     Route: 048

REACTIONS (3)
  - GASTRITIS [None]
  - RENAL FAILURE [None]
  - RHABDOMYOLYSIS [None]
